FAERS Safety Report 8154917-5 (Version None)
Quarter: 2012Q1

REPORT INFORMATION
  Report Type: 
  Country: None (occurrence: None)
  Receive Date: 20120221
  Receipt Date: 20120215
  Transmission Date: 20120608
  Serious: Yes (Other)
  Sender: FDA-Public Use
  Company Number: PHHY2011FR109762

PATIENT
  Age: 80 Year
  Sex: Female
  Weight: 61 kg

DRUGS (11)
  1. ZOLEDRONOC ACID [Suspect]
     Route: 042
     Dates: start: 20110401
  2. PANTOPRAZOLE SODIUM [Concomitant]
     Dates: start: 20010101, end: 20110101
  3. LEVOTHYROXINE SODIUM [Concomitant]
  4. CHELIDONIUM [Concomitant]
  5. CALCIUM CARBONATE [Concomitant]
  6. KALIUM BROMATUM [Concomitant]
  7. IBANDRONATE SODIUM [Suspect]
     Indication: OSTEOPOROSIS
     Dosage: UNK
     Dates: start: 20030101, end: 20100101
  8. BONIVA [Suspect]
     Indication: OSTEOPOROSIS
     Dosage: UNK
     Dates: end: 20110101
  9. PANTOPRAZOLE [Concomitant]
     Dosage: UNK
     Dates: start: 20110101
  10. AMOXICILLIN TRIHYDRATE [Concomitant]
     Dosage: UNK
     Dates: start: 20110101, end: 20111201
  11. CELESTONE [Concomitant]
     Dates: start: 20110101, end: 20111201

REACTIONS (3)
  - TOOTH ABSCESS [None]
  - CYST [None]
  - TOOTHACHE [None]
